FAERS Safety Report 5081756-4 (Version None)
Quarter: 2006Q3

REPORT INFORMATION
  Report Type: 
  Country: None (occurrence: None)
  Receive Date: 20060816
  Receipt Date: 20060804
  Transmission Date: 20061208
  Serious: Yes (Other)
  Sender: FDA-Public Use
  Company Number: US-ROCHE-458593

PATIENT
  Age: 64 Year
  Sex: Male
  Weight: 93.9 kg

DRUGS (3)
  1. PEGASYS [Suspect]
     Dosage: STRENGTH AND FORMULATION = 180 MCG/0.5CC
     Route: 058
     Dates: start: 20050923
  2. COPEGUS [Suspect]
     Route: 048
     Dates: start: 20050923, end: 20051015
  3. RIBAVIRIN [Suspect]
     Route: 048
     Dates: start: 20051015

REACTIONS (3)
  - BLINDNESS [None]
  - IMMUNODEFICIENCY [None]
  - KERATITIS HERPETIC [None]
